FAERS Safety Report 9587229 (Version 3)
Quarter: 2014Q1

REPORT INFORMATION
  Report Type: Spontaneous
  Country: DE (occurrence: DE)
  Receive Date: 20131003
  Receipt Date: 20140130
  Transmission Date: 20141002
  Serious: Yes (Life-Threatening)
  Sender: FDA-Public Use
  Company Number: DE-GLAXOSMITHKLINE-D0081234A

PATIENT
  Age: 66 Year
  Sex: Male
  Weight: 70 kg

DRUGS (4)
  1. REQUIP [Suspect]
     Indication: PARKINSONISM
     Dosage: 2MG UNKNOWN
     Route: 048
  2. CARBIDOPA + LEVODOPA [Suspect]
     Indication: PARKINSONISM
     Route: 048
  3. MADOPAR [Suspect]
     Indication: PARKINSONISM
     Route: 048
  4. BUSCOPAN PLUS [Suspect]
     Indication: ABDOMINAL PAIN UPPER
     Route: 048
     Dates: start: 20130808

REACTIONS (4)
  - Abasia [Recovered/Resolved]
  - Sensory disturbance [Recovered/Resolved]
  - Drug ineffective [Unknown]
  - Drug interaction [Unknown]
